FAERS Safety Report 5274024-9 (Version None)
Quarter: 2007Q1

REPORT INFORMATION
  Report Type: 
  Country: None (occurrence: None)
  Receive Date: 20070323
  Receipt Date: 20070321
  Transmission Date: 20070707
  Serious: Yes (Other)
  Sender: FDA-Public Use
  Company Number: DE-GLAXOSMITHKLINE-D0052722A

PATIENT
  Age: 84 Year
  Sex: Male

DRUGS (2)
  1. QUILONUM RETARD [Suspect]
     Dosage: 450MG PER DAY
     Route: 048
     Dates: start: 20070315
  2. HYDROCHLOROTHIAZIDE [Concomitant]
     Route: 065

REACTIONS (1)
  - ATRIOVENTRICULAR BLOCK FIRST DEGREE [None]
